FAERS Safety Report 8175287-2 (Version None)
Quarter: 2012Q1

REPORT INFORMATION
  Report Type: 
  Country: None (occurrence: None)
  Receive Date: 20120229
  Receipt Date: 20120222
  Transmission Date: 20120608
  Serious: Yes (Death, Hospitalization, Other)
  Sender: FDA-Public Use
  Company Number: JP-CELGENEUS-087-50794-12022839

PATIENT
  Sex: Male
  Weight: 50 kg

DRUGS (26)
  1. GASMOTIN [Concomitant]
     Route: 065
     Dates: start: 20111215, end: 20120125
  2. PREDNISOLONE [Concomitant]
     Route: 065
     Dates: start: 20120120, end: 20120123
  3. FAMOTIDINE [Concomitant]
     Route: 065
     Dates: end: 20111211
  4. ISODINE GARGLE [Concomitant]
     Route: 065
     Dates: start: 20111205
  5. CLARITIN REDITABS [Concomitant]
     Route: 065
     Dates: end: 20111211
  6. LOXOPROFEN SODIUM HYDRATE [Concomitant]
     Route: 065
     Dates: start: 20111209
  7. CLINDAMYCIN [Concomitant]
     Route: 065
     Dates: start: 20120105, end: 20120119
  8. NISSEKI POLYGLOBIN-N [Concomitant]
     Route: 065
     Dates: start: 20120107, end: 20120109
  9. ALEROFF [Concomitant]
     Route: 065
     Dates: start: 20111212, end: 20120125
  10. FUNGIZONE [Concomitant]
     Route: 065
     Dates: start: 20111205
  11. CEFON [Concomitant]
     Route: 065
     Dates: start: 20120120, end: 20120131
  12. VIDAZA [Suspect]
     Dosage: 75 MILLIGRAM/SQ. METER
     Route: 058
     Dates: start: 20111205, end: 20111211
  13. CEFEPIME [Concomitant]
     Indication: FEBRILE NEUTROPENIA
     Route: 065
     Dates: start: 20111209, end: 20111219
  14. FUNGUARD [Concomitant]
     Route: 065
     Dates: start: 20120105, end: 20120125
  15. DORIPENEM [Concomitant]
     Indication: FEBRILE NEUTROPENIA
     Route: 065
  16. BIO-THREE [Concomitant]
     Route: 065
     Dates: end: 20111211
  17. MAGNESIUM OXIDE [Concomitant]
     Route: 065
     Dates: end: 20120118
  18. SODIUM PICOSULFATE HYDRATE [Concomitant]
     Route: 065
     Dates: start: 20111217
  19. CEFTRIAXONE SODIUM HYDRATE [Concomitant]
     Route: 065
     Dates: start: 20120111, end: 20120114
  20. MIYA BM [Concomitant]
     Route: 065
     Dates: start: 20111212, end: 20120125
  21. MARZULENE-S [Concomitant]
     Route: 065
     Dates: end: 20120118
  22. SULBACTAM SODIUM AMPICILLIN SODIUM [Concomitant]
     Route: 065
     Dates: start: 20120105, end: 20120110
  23. ROXATIDINE ACETATE HCL [Concomitant]
     Route: 065
     Dates: start: 20111212, end: 20120118
  24. PRODIF [Concomitant]
     Route: 065
     Dates: start: 20111226, end: 20120105
  25. CIPROFLOXACIN [Concomitant]
     Route: 065
     Dates: start: 20120114, end: 20120128
  26. PREDNISOLONE [Concomitant]
     Route: 065
     Dates: start: 20120124, end: 20120131

REACTIONS (6)
  - NEUTROPHIL COUNT DECREASED [None]
  - ANAEMIA [None]
  - PNEUMONIA BACTERIAL [None]
  - WHITE BLOOD CELL COUNT DECREASED [None]
  - BRONCHOPNEUMONIA [None]
  - PLATELET COUNT DECREASED [None]
